FAERS Safety Report 6218530-9 (Version None)
Quarter: 2009Q2

REPORT INFORMATION
  Report Type: 
  Country: None (occurrence: None)
  Receive Date: 20090604
  Receipt Date: 20090604
  Transmission Date: 20091009
  Serious: Yes (Hospitalization, Other)
  Sender: FDA-Public Use
  Company Number: None

PATIENT
  Age: 45 Year
  Sex: Female
  Weight: 72.1219 kg

DRUGS (2)
  1. CYMBALTA [Suspect]
     Indication: DEPRESSION
     Dosage: 1 CAPSULE 1 TIME PO
     Route: 048
     Dates: start: 20080915, end: 20090601
  2. CYMBALTA [Suspect]
     Indication: MOOD SWINGS
     Dosage: 1 CAPSULE 1 TIME PO
     Route: 048
     Dates: start: 20080915, end: 20090601

REACTIONS (8)
  - COMPULSIVE SHOPPING [None]
  - CONDITION AGGRAVATED [None]
  - DISTURBANCE IN ATTENTION [None]
  - EUPHORIC MOOD [None]
  - HOT FLUSH [None]
  - MYOCARDIAL INFARCTION [None]
  - PERIPHERAL COLDNESS [None]
  - RESTLESS LEGS SYNDROME [None]
